FAERS Safety Report 7407564-4 (Version None)
Quarter: 2011Q2

REPORT INFORMATION
  Report Type: 
  Country: None (occurrence: None)
  Receive Date: 20110406
  Receipt Date: 20110406
  Transmission Date: 20111010
  Serious: Yes (Hospitalization)
  Sender: FDA-Public Use
  Company Number: None

PATIENT
  Sex: Female
  Weight: 86.2 kg

DRUGS (2)
  1. ALIMTA [Suspect]
     Dosage: 1000 MG
  2. CISPLATIN [Suspect]
     Dosage: 100 MG

REACTIONS (2)
  - DRUG INEFFECTIVE [None]
  - BACK PAIN [None]
